FAERS Safety Report 13903721 (Version 24)
Quarter: 2019Q1

REPORT INFORMATION
  Report Type: Spontaneous
  Country: US (occurrence: US)
  Receive Date: 20170824
  Receipt Date: 20190214
  Transmission Date: 20190417
  Serious: Yes (Death, Life-Threatening, Hospitalization, Other)
  Sender: FDA-Public Use
  Company Number: US-ACTELION-A-NJ2017-158465

PATIENT
  Age: 69 Year
  Sex: Male
  Weight: 80.73 kg

DRUGS (7)
  1. OPSUMIT [Suspect]
     Active Substance: MACITENTAN
     Indication: PULMONARY HYPERTENSION
     Dosage: 10 MG, QD
     Route: 048
     Dates: start: 20140919, end: 20181230
  2. ADEMPAS [Suspect]
     Active Substance: RIOCIGUAT
     Indication: PRODUCT USED FOR UNKNOWN INDICATION
     Route: 065
  3. COUMADIN [Concomitant]
     Active Substance: WARFARIN SODIUM
  4. REVATIO [Concomitant]
     Active Substance: SILDENAFIL CITRATE
  5. VELETRI [Suspect]
     Active Substance: EPOPROSTENOL
     Dosage: 26 NG/KG, PER MIN
     Route: 042
  6. VELETRI [Suspect]
     Active Substance: EPOPROSTENOL
     Dosage: UNK
     Route: 042
  7. VELETRI [Suspect]
     Active Substance: EPOPROSTENOL
     Indication: PULMONARY HYPERTENSION
     Dosage: 26 NG/KG, PER MIN
     Route: 042

REACTIONS (31)
  - Dyspnoea [Unknown]
  - Dyspnoea exertional [Unknown]
  - Unevaluable event [Unknown]
  - Tremor [Unknown]
  - Irritability [Unknown]
  - Seizure [Unknown]
  - Cold sweat [Unknown]
  - Cataract [Unknown]
  - Death [Fatal]
  - Hypotension [Unknown]
  - Pain in jaw [Unknown]
  - Weight decreased [Unknown]
  - Device issue [Unknown]
  - Drug level decreased [Unknown]
  - Pneumonia [Not Recovered/Not Resolved]
  - Blood pressure abnormal [Unknown]
  - Visual impairment [Unknown]
  - Device occlusion [Unknown]
  - Hypoglycaemia [Unknown]
  - Pyrexia [Unknown]
  - Device alarm issue [Unknown]
  - Insomnia [Unknown]
  - Sepsis [Unknown]
  - Catheter management [Unknown]
  - Fall [Not Recovered/Not Resolved]
  - Lethargy [Unknown]
  - Restless legs syndrome [Unknown]
  - Mental status changes [Unknown]
  - Rib fracture [Not Recovered/Not Resolved]
  - Catheter site scar [Unknown]
  - Hypoacusis [Unknown]

NARRATIVE: CASE EVENT DATE: 20180205
